FAERS Safety Report 4854445-6 (Version None)
Quarter: 2005Q4

REPORT INFORMATION
  Report Type: 
  Country: None (occurrence: None)
  Receive Date: 20051215
  Receipt Date: 20050929
  Transmission Date: 20060501
  Serious: Yes (Disabling, Other)
  Sender: FDA-Public Use
  Company Number: PHRM2005FR02587

PATIENT
  Age: 44 Year
  Sex: Female
  Weight: 54 kg

DRUGS (1)
  1. AREDIA [Suspect]
     Indication: SPONDYLITIS
     Dosage: 1 DF, ONCE/SINGLE
     Route: 042
     Dates: start: 20050630, end: 20050630

REACTIONS (2)
  - DENTAL NECROSIS [None]
  - TOOTH EXTRACTION [None]
